FAERS Safety Report 9377866 (Version 1)
Quarter: 2013Q2

REPORT INFORMATION
  Report Type: Spontaneous
  Country: US (occurrence: None)
  Receive Date: 20130625
  Receipt Date: 20130625
  Transmission Date: 20140414
  Serious: Yes (Hospitalization)
  Sender: FDA-Public Use
  Company Number: 2013AP006092

PATIENT
  Age: 13 Year
  Sex: Female
  Weight: 46.4 kg

DRUGS (3)
  1. FERRIPROX [Suspect]
     Indication: THALASSAEMIA
     Route: 048
     Dates: start: 20130329, end: 20130527
  2. FERRIPROX [Suspect]
     Indication: HAEMOCHROMATOSIS
     Route: 048
     Dates: start: 20130329, end: 20130527
  3. EXJADE [Concomitant]

REACTIONS (7)
  - Fatigue [None]
  - Back pain [None]
  - Heart rate decreased [None]
  - Oxygen saturation decreased [None]
  - Infection [None]
  - Serum ferritin decreased [None]
  - Treatment noncompliance [None]
